FAERS Safety Report 6741329-1 (Version None)
Quarter: 2010Q2

REPORT INFORMATION
  Report Type: 
  Country: None (occurrence: None)
  Receive Date: 20100526
  Receipt Date: 20100514
  Transmission Date: 20101027
  Serious: Yes (Other)
  Sender: FDA-Public Use
  Company Number: US-PFIZER INC-2009306749

PATIENT
  Sex: Male

DRUGS (3)
  1. SUTENT [Suspect]
     Indication: METASTATIC RENAL CELL CARCINOMA
     Dosage: 2 CAPSULES X 12.5 MG, DAILY
     Route: 048
     Dates: start: 20091123
  2. XANAX [Concomitant]
  3. TRAMADOL [Concomitant]

REACTIONS (4)
  - DYSPNOEA [None]
  - HAEMORRHAGE [None]
  - LETHARGY [None]
  - PALMAR-PLANTAR ERYTHRODYSAESTHESIA SYNDROME [None]
